FAERS Safety Report 7049981-0 (Version None)
Quarter: 2010Q4

REPORT INFORMATION
  Report Type: 
  Country: None (occurrence: None)
  Receive Date: 20101013
  Receipt Date: 20101007
  Transmission Date: 20110411
  Serious: Yes (Hospitalization)
  Sender: FDA-Public Use
  Company Number: 106901

PATIENT
  Age: 18 Month
  Sex: Female

DRUGS (3)
  1. LABETALOL HCL [Suspect]
     Dates: start: 20061126
  2. LABETALOL HCL [Suspect]
     Dates: start: 20061127
  3. NORVASC [Concomitant]

REACTIONS (2)
  - CARDIAC ARREST [None]
  - HYPOXIC-ISCHAEMIC ENCEPHALOPATHY [None]
